FAERS Safety Report 9387682 (Version 1)
Quarter: 2013Q3

REPORT INFORMATION
  Report Type: Report from Study
  Country: JP (occurrence: JP)
  Receive Date: 20130708
  Receipt Date: 20130708
  Transmission Date: 20140515
  Serious: Yes (Death)
  Sender: FDA-Public Use
  Company Number: JP-ASTELLAS-2013JP007231

PATIENT
  Sex: Female

DRUGS (23)
  1. TACROLIMUS CAPSULES [Suspect]
     Indication: LUPUS NEPHRITIS
     Dosage: 1.5 MG, UNKNOWN/D
     Route: 048
     Dates: start: 20070416, end: 20070704
  2. TACROLIMUS CAPSULES [Suspect]
     Dosage: 3.0 MG, UNKNOWN/D
     Route: 048
     Dates: start: 20070705, end: 20110808
  3. PREDNISOLONE [Concomitant]
     Indication: LUPUS NEPHRITIS
     Dosage: 15 MG, UNKNOWN/D
     Route: 048
     Dates: end: 20080727
  4. PREDNISOLONE [Concomitant]
     Dosage: 14 MG, UNKNOWN/D
     Route: 048
     Dates: start: 20080728, end: 20081019
  5. PREDNISOLONE [Concomitant]
     Dosage: 13 MG, UNKNOWN/D
     Route: 048
     Dates: start: 20081020, end: 20090118
  6. PREDNISOLONE [Concomitant]
     Dosage: 12 MG, UNKNOWN/D
     Route: 048
     Dates: start: 20090119, end: 20090419
  7. PREDNISOLONE [Concomitant]
     Dosage: 11 MG, UNKNOWN/D
     Route: 048
     Dates: start: 20090420, end: 20100725
  8. PREDNISOLONE [Concomitant]
     Dosage: 20 MG, UNKNOWN/D
     Route: 048
     Dates: start: 20100726, end: 20101017
  9. PREDNISOLONE [Concomitant]
     Dosage: 17.5 MG, UNKNOWN/D
     Route: 048
     Dates: start: 20101018, end: 20101215
  10. PREDNISOLONE [Concomitant]
     Dosage: 15 MG, UNKNOWN/D
     Route: 048
     Dates: start: 20101216
  11. PREDNISOLONE [Concomitant]
     Dosage: 14 MG, UNKNOWN/D
     Route: 048
     Dates: end: 20110808
  12. AZATHIOPRINE [Concomitant]
     Indication: LUPUS NEPHRITIS
     Dosage: UNK
     Route: 048
  13. MUCOSTA [Concomitant]
     Indication: PROPHYLAXIS
     Dosage: 300 MG, UNKNOWN/D
     Route: 048
     Dates: end: 20090215
  14. NEUER [Concomitant]
     Indication: PROPHYLAXIS
     Dosage: 600 MG, UNKNOWN/D
     Route: 048
     Dates: end: 20090215
  15. PURSENNID                          /00142207/ [Concomitant]
     Dosage: 24 MG, UNKNOWN/D
     Route: 048
     Dates: end: 20110808
  16. ROHYPNOL [Concomitant]
     Dosage: 1 MG, UNKNOWN/D
     Route: 048
     Dates: end: 20110808
  17. LENDORMIN [Concomitant]
     Dosage: 0.25 MG, UID/QD
     Route: 048
     Dates: end: 20110808
  18. PROTECADIN [Concomitant]
     Indication: PROPHYLAXIS
     Dosage: 10 MG, UNKNOWN/D
     Route: 048
     Dates: end: 20090215
  19. LOXONIN [Concomitant]
     Indication: SLE ARTHRITIS
     Dosage: 180 MG, UNKNOWN/D
     Route: 048
  20. LOXONIN [Concomitant]
     Dosage: 180 MG, UNKNOWN/D
     Route: 048
     Dates: end: 20110808
  21. TAKEPRON [Concomitant]
     Indication: PROPHYLAXIS
     Dosage: 15 MG, UNKNOWN/D
     Route: 048
     Dates: start: 20090216, end: 20110808
  22. FERROMIA                           /00023516/ [Concomitant]
     Dosage: 50 MG, UNKNOWN/D
     Route: 048
     Dates: end: 20110808
  23. GASMOTIN [Concomitant]
     Indication: PROPHYLAXIS
     Dosage: 15 MG, UNKNOWN/D
     Route: 048
     Dates: end: 20110808

REACTIONS (1)
  - Sudden death [Fatal]
